FAERS Safety Report 25325499 (Version 2)
Quarter: 2025Q3

REPORT INFORMATION
  Report Type: Spontaneous
  Country: GB (occurrence: GB)
  Receive Date: 20250516
  Receipt Date: 20250803
  Transmission Date: 20251020
  Serious: Yes (Other)
  Sender: ALEXION PHARMACEUTICALS
  Company Number: GB-AstraZeneca-CH-00852293A

PATIENT
  Age: 32 Year
  Sex: Female

DRUGS (2)
  1. TAGRISSO [Suspect]
     Active Substance: OSIMERTINIB
     Indication: Triple negative breast cancer
     Dosage: 250 MILLIGRAM, BID
     Route: 065
     Dates: start: 20240219, end: 20250217
  2. OLAPARIB [Concomitant]
     Active Substance: OLAPARIB
     Indication: Breast cancer female
     Route: 065

REACTIONS (2)
  - Abortion spontaneous [Unknown]
  - Exposure during pregnancy [Unknown]
